FAERS Safety Report 13286055 (Version 3)
Quarter: 2017Q2

REPORT INFORMATION
  Report Type: Report from Study
  Country: TR (occurrence: TR)
  Receive Date: 20170301
  Receipt Date: 20170426
  Transmission Date: 20170830
  Serious: Yes (Death, Life-Threatening, Hospitalization)
  Sender: FDA-Public Use
  Company Number: TR-ROCHE-1895317

PATIENT
  Age: 76 Year
  Sex: Female

DRUGS (1)
  1. ATEZOLIZUMAB [Suspect]
     Active Substance: ATEZOLIZUMAB
     Indication: TRANSITIONAL CELL CARCINOMA
     Dosage: 1200 MG/20 ML
     Route: 065
     Dates: start: 20170126

REACTIONS (5)
  - Pneumonitis [Fatal]
  - Respiratory failure [Fatal]
  - Cystitis [Recovered/Resolved]
  - Urinary tract infection [Not Recovered/Not Resolved]
  - Hyponatraemia [Not Recovered/Not Resolved]

NARRATIVE: CASE EVENT DATE: 20170224
